FAERS Safety Report 23637390 (Version 1)
Quarter: 2024Q1

REPORT INFORMATION
  Report Type: Other
  Country: TR (occurrence: TR)
  Receive Date: 20240315
  Receipt Date: 20240315
  Transmission Date: 20240409
  Serious: Yes (Other)
  Sender: FDA-Public Use
  Company Number: TR-BoehringerIngelheim-2024-BI-013190

PATIENT
  Age: 32 Year
  Sex: Female

DRUGS (4)
  1. ALTEPLASE [Suspect]
     Active Substance: ALTEPLASE
     Indication: Pulmonary embolism
     Route: 042
  2. ALTEPLASE [Suspect]
     Active Substance: ALTEPLASE
     Route: 042
  3. ALTEPLASE [Suspect]
     Active Substance: ALTEPLASE
     Route: 042
  4. UNSPECIFIED INGREDIENT [Concomitant]
     Active Substance: UNSPECIFIED INGREDIENT
     Dosage: 6000 ANTI-FXA IU/0.6 ML TWICE A DAY

REACTIONS (3)
  - Pulmonary artery thrombosis [Recovering/Resolving]
  - Off label use [Unknown]
  - Tricuspid valve incompetence [Recovering/Resolving]
